FAERS Safety Report 4821015-5 (Version None)
Quarter: 2005Q4

REPORT INFORMATION
  Report Type: 
  Country: None (occurrence: None)
  Receive Date: 20051103
  Receipt Date: 20051025
  Transmission Date: 20060501
  Serious: Yes (Hospitalization)
  Sender: FDA-Public Use
  Company Number: 2005PV003457

PATIENT
  Age: 58 Year
  Sex: Male

DRUGS (8)
  1. BYETTA [Suspect]
     Indication: DIABETES MELLITUS INSULIN-DEPENDENT
     Dosage: 5 MCG; SC
     Route: 058
     Dates: start: 20051024, end: 20051024
  2. COZAAR [Concomitant]
  3. LANOXIN [Concomitant]
  4. LISINOPRIL [Concomitant]
  5. WARFARIN [Concomitant]
  6. LASIX [Concomitant]
  7. COREG [Concomitant]
  8. POTASSIUM [Concomitant]

REACTIONS (4)
  - ARRHYTHMIA [None]
  - DIZZINESS [None]
  - HEART RATE INCREASED [None]
  - MALAISE [None]
